FAERS Safety Report 9803596 (Version 1)
Quarter: 2014Q1

REPORT INFORMATION
  Report Type: Spontaneous
  Country: US (occurrence: US)
  Receive Date: 20140108
  Receipt Date: 20140108
  Transmission Date: 20141002
  Serious: No
  Sender: FDA-Public Use
  Company Number: US-GLAXOSMITHKLINE-A1011424A

PATIENT
  Age: 51 Year
  Sex: Male

DRUGS (5)
  1. LOVAZA [Suspect]
     Indication: BLOOD TRIGLYCERIDES INCREASED
     Route: 048
     Dates: start: 2010
  2. HEART MEDICATION [Concomitant]
  3. DIABETES MEDICATION [Concomitant]
  4. METFORMIN [Concomitant]
  5. UNSPECIFIED MEDICATION [Concomitant]

REACTIONS (2)
  - Medication residue present [Not Recovered/Not Resolved]
  - Product quality issue [Unknown]
